FAERS Safety Report 10493646 (Version 1)
Quarter: 2014Q4

REPORT INFORMATION
  Report Type: Spontaneous
  Country: US (occurrence: US)
  Receive Date: 20141002
  Receipt Date: 20141002
  Transmission Date: 20150528
  Serious: No
  Sender: FDA-Public Use
  Company Number: US-GLAXOSMITHKLINE-A1086630A

PATIENT
  Age: 72 Year
  Sex: Female

DRUGS (2)
  1. ADVAIR HFA [Suspect]
     Active Substance: FLUTICASONE PROPIONATE\SALMETEROL XINAFOATE
     Indication: ASTHMA
     Dosage: 1PUFF TWICE PER DAY
     Route: 055
  2. VENTOLIN [Suspect]
     Active Substance: ALBUTEROL SULFATE
     Indication: ASTHMA
     Dosage: 2PUFF AS REQUIRED
     Route: 055
     Dates: start: 20140910

REACTIONS (12)
  - Bronchitis [Unknown]
  - Cystitis [Unknown]
  - Cough [Unknown]
  - Chest pain [Unknown]
  - Back pain [Unknown]
  - Dyspnoea [Unknown]
  - Vomiting [Unknown]
  - Abdominal discomfort [Unknown]
  - Corrective lens user [Unknown]
  - Vision blurred [Unknown]
  - Multiple allergies [Unknown]
  - Cataract [Unknown]
